FAERS Safety Report 20192803 (Version 1)
Quarter: 2021Q4

REPORT INFORMATION
  Report Type: Report from Study
  Country: ZA (occurrence: ZA)
  Receive Date: 20211216
  Receipt Date: 20211216
  Transmission Date: 20220304
  Serious: Yes (Hospitalization)
  Sender: FDA-Public Use
  Company Number: ZA-ViiV Healthcare Limited-ZA2021GSK251247

PATIENT
  Age: 35 Year
  Sex: Female
  Weight: 113.9 kg

DRUGS (4)
  1. ATRIPLA [Suspect]
     Active Substance: EFAVIRENZ\EMTRICITABINE\TENOFOVIR DISOPROXIL FUMARATE
     Indication: HIV infection
     Dosage: 200/600/300 MG, QD
     Route: 048
     Dates: start: 20180221, end: 20200114
  2. DOLUTEGRAVIR [Suspect]
     Active Substance: DOLUTEGRAVIR
     Indication: HIV infection
     Dosage: UNK
     Dates: start: 20200115
  3. EMTRICITABINE\TENOFOVIR [Suspect]
     Active Substance: EMTRICITABINE\TENOFOVIR
     Indication: HIV infection
     Dosage: UNK
     Dates: start: 20200115
  4. PFIZER BIONTECH VACCINE FOR COVID-19 (BNT162B2) [Concomitant]
     Indication: COVID-19 prophylaxis
     Dosage: 0.3 ML, STAT
     Route: 030
     Dates: start: 20210813, end: 20210813

REACTIONS (3)
  - Retained products of conception [Recovered/Resolved]
  - Abortion induced [Unknown]
  - Exposure during pregnancy [Unknown]

NARRATIVE: CASE EVENT DATE: 20210826
